FAERS Safety Report 12174231 (Version 2)
Quarter: 2016Q2

REPORT INFORMATION
  Report Type: Spontaneous
  Country: CA (occurrence: CA)
  Receive Date: 20160314
  Receipt Date: 20160427
  Transmission Date: 20160815
  Serious: Yes (Other)
  Sender: FDA-Public Use
  Company Number: CA-ROCHE-1723286

PATIENT
  Age: 41 Year
  Sex: Female

DRUGS (9)
  1. XOLAIR [Suspect]
     Active Substance: OMALIZUMAB
     Indication: ASTHMA
     Route: 058
     Dates: start: 20121023
  2. NASONEX [Concomitant]
     Active Substance: MOMETASONE FUROATE
  3. ADVAIR HFA [Concomitant]
     Active Substance: FLUTICASONE PROPIONATE\SALMETEROL XINAFOATE
     Route: 065
     Dates: start: 201502
  4. REACTINE (CANADA) [Concomitant]
     Active Substance: CETIRIZINE HYDROCHLORIDE
  5. RANITIDINE. [Concomitant]
     Active Substance: RANITIDINE
  6. ADVAIR HFA [Concomitant]
     Active Substance: FLUTICASONE PROPIONATE\SALMETEROL XINAFOATE
     Route: 065
     Dates: end: 201412
  7. SINGULAIR [Concomitant]
     Active Substance: MONTELUKAST SODIUM
  8. SALBUTAMOL [Concomitant]
     Active Substance: ALBUTEROL
  9. ALVESCO [Concomitant]
     Active Substance: CICLESONIDE

REACTIONS (7)
  - Rhinitis [Unknown]
  - Lower respiratory tract infection [Unknown]
  - Malaise [Unknown]
  - Hypersensitivity [Unknown]
  - Asthma [Not Recovered/Not Resolved]
  - Cough [Unknown]
  - Respiratory tract infection [Unknown]

NARRATIVE: CASE EVENT DATE: 20140217
